FAERS Safety Report 15658491 (Version 2)
Quarter: 2018Q4

REPORT INFORMATION
  Report Type: Report from Study
  Country: US (occurrence: US)
  Receive Date: 20181126
  Receipt Date: 20181204
  Transmission Date: 20190205
  Serious: Yes (Hospitalization)
  Sender: FDA-Public Use
  Company Number: US-ACTELION-A-US2016-141790

PATIENT
  Age: 89 Year
  Sex: Female
  Weight: 47.62 kg

DRUGS (3)
  1. TRACLEER [Suspect]
     Active Substance: BOSENTAN
     Indication: PULMONARY ARTERIAL HYPERTENSION
     Dosage: 125 MG, BID
     Route: 048
     Dates: start: 20101102
  2. WARFARIN [Concomitant]
     Active Substance: WARFARIN
  3. ADCIRCA [Concomitant]
     Active Substance: TADALAFIL

REACTIONS (16)
  - Dyspnoea [Unknown]
  - Eye contusion [Unknown]
  - Peripheral swelling [Unknown]
  - Fall [Unknown]
  - Skin laceration [Unknown]
  - Tremor [Unknown]
  - Dizziness [Unknown]
  - Cardiac disorder [Unknown]
  - Contusion [Unknown]
  - Cough [Not Recovered/Not Resolved]
  - Pneumonia [Unknown]
  - Joint swelling [Unknown]
  - Haemorrhage [Unknown]
  - Head injury [Unknown]
  - Cardiomegaly [Unknown]
  - Dyspnoea exertional [Unknown]

NARRATIVE: CASE EVENT DATE: 20180430
